FAERS Safety Report 17991126 (Version 1)
Quarter: 2020Q3

REPORT INFORMATION
  Report Type: Spontaneous
  Country: KR (occurrence: KR)
  Receive Date: 20200707
  Receipt Date: 20200707
  Transmission Date: 20201103
  Serious: Yes (Other)
  Sender: FDA-Public Use
  Company Number: KR-ASTRAZENECA-2020SE85883

PATIENT
  Age: 54 Year
  Sex: Male

DRUGS (1)
  1. EXENATIDE. [Suspect]
     Active Substance: EXENATIDE
     Indication: TYPE 2 DIABETES MELLITUS
     Dosage: ONCE PER WEEK
     Route: 058

REACTIONS (2)
  - Eosinophilic panniculitis [Recovered/Resolved]
  - Injection site nodule [Recovered/Resolved]
